FAERS Safety Report 9796394 (Version 1)
Quarter: 2014Q1

REPORT INFORMATION
  Report Type: Spontaneous
  Country: GB (occurrence: GB)
  Receive Date: 20140103
  Receipt Date: 20140103
  Transmission Date: 20141002
  Serious: Yes (Hospitalization)
  Sender: FDA-Public Use
  Company Number: GB-TEVA-452728ISR

PATIENT
  Age: 43 Year
  Sex: Female
  Weight: 55.1 kg

DRUGS (2)
  1. PHENYTOIN [Suspect]
     Indication: EPILEPSY
     Dosage: 400 MILLIGRAM DAILY;
     Route: 048
     Dates: start: 19950701, end: 20130823
  2. STEMETIL [Interacting]
     Indication: VERTIGO
     Dosage: 30 MILLIGRAM DAILY;
     Route: 048
     Dates: start: 20130817, end: 20130823

REACTIONS (2)
  - Drug interaction [Recovered/Resolved]
  - Toxicity to various agents [Recovered/Resolved]
